FAERS Safety Report 6735019-9 (Version None)
Quarter: 2010Q2

REPORT INFORMATION
  Report Type: 
  Country: None (occurrence: None)
  Receive Date: 20100521
  Receipt Date: 20100430
  Transmission Date: 20101027
  Serious: Yes (Hospitalization, Other)
  Sender: FDA-Public Use
  Company Number: US-BAYER-201013285NA

PATIENT
  Age: 36 Year
  Sex: Female
  Weight: 61 kg

DRUGS (5)
  1. YAZ [Suspect]
     Indication: ORAL CONTRACEPTION
     Route: 048
     Dates: start: 20090416, end: 20091030
  2. KOPIDEX [Concomitant]
  3. ACIPHEX [Concomitant]
  4. PHENERGAN [Concomitant]
  5. ZITHROMAX [Concomitant]

REACTIONS (6)
  - ABDOMINAL PAIN [None]
  - CHOLECYSTITIS [None]
  - GASTROINTESTINAL DISORDER [None]
  - HYPERHIDROSIS [None]
  - NAUSEA [None]
  - VOMITING [None]
